FAERS Safety Report 9559543 (Version 1)
Quarter: 2013Q3

REPORT INFORMATION
  Report Type: Spontaneous
  Country: US (occurrence: None)
  Receive Date: 20130909
  Receipt Date: 20130909
  Transmission Date: 20140515
  Serious: Yes (Other)
  Sender: FDA-Public Use
  Company Number: 370563

PATIENT
  Age: 58 Year
  Sex: Female
  Weight: 114.3 kg

DRUGS (7)
  1. VICTOZA [Suspect]
     Indication: TYPE 2 DIABETES MELLITUS
     Route: 058
     Dates: start: 20100913, end: 20111209
  2. LANTUS (INSULIN GLARGINE) [Concomitant]
  3. NOVOLOG (INSULIN ASPART) [Concomitant]
  4. BUMEX (BUMETANIDE) [Concomitant]
  5. LIPITOR (ATORVASTATIN CALCIUM) [Concomitant]
  6. METFORMIN (METFORMIN) [Concomitant]
  7. ZESTRIL (LISINOPRIL) [Concomitant]

REACTIONS (1)
  - Pancreatitis [None]
